FAERS Safety Report 6710885-1 (Version None)
Quarter: 2010Q2

REPORT INFORMATION
  Report Type: 
  Country: None (occurrence: None)
  Receive Date: 20100505
  Receipt Date: 20100426
  Transmission Date: 20101027
  Serious: No
  Sender: FDA-Public Use
  Company Number: US-BIOGENIDEC-2010BI014445

PATIENT
  Age: 28 Year
  Sex: Female

DRUGS (2)
  1. TYSABRI [Suspect]
     Indication: MULTIPLE SCLEROSIS
     Route: 042
     Dates: start: 20070522, end: 20080925
  2. TYSABRI [Suspect]
     Route: 042
     Dates: start: 20100208

REACTIONS (3)
  - RHINORRHOEA [None]
  - THROAT IRRITATION [None]
  - URINARY TRACT INFECTION [None]
